FAERS Safety Report 7433600-5 (Version None)
Quarter: 2011Q2

REPORT INFORMATION
  Report Type: 
  Country: None (occurrence: None)
  Receive Date: 20110422
  Receipt Date: 20110415
  Transmission Date: 20111010
  Serious: Yes (Other)
  Sender: FDA-Public Use
  Company Number: US-AMGEN-USASP2011016608

PATIENT
  Sex: Female

DRUGS (3)
  1. HUMIRA [Concomitant]
  2. ENBREL [Suspect]
     Indication: PSORIASIS
     Dosage: 50 MG, 2 TIMES/WK
     Dates: start: 20060101
  3. ENBREL [Suspect]
     Indication: SARCOIDOSIS

REACTIONS (4)
  - FEELING ABNORMAL [None]
  - INFLUENZA [None]
  - PSORIASIS [None]
  - PULMONARY SARCOIDOSIS [None]
